FAERS Safety Report 13103536 (Version 3)
Quarter: 2017Q1

REPORT INFORMATION
  Report Type: Spontaneous
  Country: US (occurrence: US)
  Receive Date: 20170111
  Receipt Date: 20170119
  Transmission Date: 20170428
  Serious: Yes (Other)
  Sender: FDA-Public Use
  Company Number: US-HORIZON-DUE-0003-2017

PATIENT
  Age: 65 Year
  Sex: Male

DRUGS (2)
  1. DUEXIS [Suspect]
     Active Substance: FAMOTIDINE\IBUPROFEN
     Indication: NEUROPATHY PERIPHERAL
     Dosage: 1 TABLET BID
  2. TRAMADOL. [Concomitant]
     Active Substance: TRAMADOL

REACTIONS (5)
  - Pain [Unknown]
  - Osteomyelitis [Unknown]
  - Insomnia [Unknown]
  - Off label use [Unknown]
  - Toe operation [Unknown]
